FAERS Safety Report 21669149 (Version 2)
Quarter: 2022Q4

REPORT INFORMATION
  Report Type: Spontaneous
  Country: NL (occurrence: NL)
  Receive Date: 20221201
  Receipt Date: 20221224
  Transmission Date: 20230113
  Serious: Yes (Hospitalization, Other)
  Sender: FDA-Public Use
  Company Number: NL-002147023-NVSC2022NL265846

PATIENT
  Age: 4 Week
  Sex: Male
  Weight: 3.3 kg

DRUGS (2)
  1. ZOLGENSMA [Suspect]
     Active Substance: ONASEMNOGENE ABEPARVOVEC-XIOI
     Indication: Spinal muscular atrophy
     Dosage: 22 ML, ONCE/SINGLE
     Route: 042
     Dates: start: 20221115, end: 20221116
  2. PREDNISONE [Concomitant]
     Active Substance: PREDNISONE
     Indication: Product used for unknown indication
     Dosage: 1 MG/KG
     Route: 065

REACTIONS (5)
  - Enterobacter infection [Recovered/Resolved]
  - Sepsis [Recovered/Resolved]
  - Body temperature increased [Unknown]
  - Tachycardia [Unknown]
  - Pericarditis [Recovering/Resolving]

NARRATIVE: CASE EVENT DATE: 20221120
